FAERS Safety Report 6637611-9 (Version None)
Quarter: 2010Q1

REPORT INFORMATION
  Report Type: 
  Country: None (occurrence: None)
  Receive Date: 20100317
  Receipt Date: 20100302
  Transmission Date: 20100710
  Serious: Yes (Other)
  Sender: FDA-Public Use
  Company Number: US-BAYER-US-2007-028463

PATIENT
  Age: 56 Year
  Sex: Male

DRUGS (6)
  1. CAMPATH [Suspect]
     Indication: MYELODYSPLASTIC SYNDROME
     Dosage: DOSE NOT REPORTED [FORM: AMPULE]
     Dates: start: 20051101, end: 20060101
  2. ENOXAPARIN SODIUM [Concomitant]
  3. FONDAPARINUX SODIUM [Concomitant]
     Dosage: TOTAL DAILY DOSE: 10 MG
     Route: 058
  4. PREDNISONE [Concomitant]
     Dosage: TOTAL DAILY DOSE: 60 MG
  5. ECULIZUMAB [Concomitant]
     Dosage: TOTAL DAILY DOSE: 900 MG
     Route: 042
     Dates: start: 20070301
  6. ECULIZUMAB [Concomitant]
     Dates: start: 20070201

REACTIONS (2)
  - CEREBRAL THROMBOSIS [None]
  - PAROXYSMAL NOCTURNAL HAEMOGLOBINURIA [None]
